FAERS Safety Report 20738215 (Version 1)
Quarter: 2022Q2

REPORT INFORMATION
  Report Type: Spontaneous
  Country: PL (occurrence: PL)
  Receive Date: 20220422
  Receipt Date: 20220422
  Transmission Date: 20220720
  Serious: Yes (Other)
  Sender: FDA-Public Use
  Company Number: PL-002147023-NVSC2022PL081013

PATIENT
  Age: 70 Year
  Sex: Female

DRUGS (8)
  1. ANAGRELIDE [Suspect]
     Active Substance: ANAGRELIDE
     Indication: Myelofibrosis
     Dosage: UNK
     Route: 065
  2. ASPIRIN [Suspect]
     Active Substance: ASPIRIN
     Indication: Myelofibrosis
     Dosage: UNK
     Route: 065
  3. HYDROXYUREA [Suspect]
     Active Substance: HYDROXYUREA
     Indication: Myelofibrosis
     Dosage: 1 GRAM, QD
     Route: 065
     Dates: start: 20150523
  4. ERYTHROPOIETIN [Suspect]
     Active Substance: ERYTHROPOIETIN
     Indication: Myelofibrosis
     Dosage: UNK
     Route: 065
  5. FEDRATINIB [Suspect]
     Active Substance: FEDRATINIB
     Indication: Product used for unknown indication
     Dosage: UNK
     Route: 065
  6. INTERFERON ALFA-2A OR INTERFERON ALFA-2B [Suspect]
     Active Substance: INTERFERON ALFA-2A OR INTERFERON ALFA-2B
     Indication: Myelofibrosis
     Dosage: UNK
     Route: 065
  7. RUXOLITINIB [Suspect]
     Active Substance: RUXOLITINIB
     Indication: Myelofibrosis
     Dosage: 40 MILLIGRAM, QD
     Route: 065
     Dates: start: 20181005
  8. THALIDOMIDE [Suspect]
     Active Substance: THALIDOMIDE
     Indication: Product used for unknown indication
     Dosage: UNK
     Route: 065

REACTIONS (4)
  - Myelofibrosis [Unknown]
  - Malignant neoplasm progression [Unknown]
  - Drug ineffective [Unknown]
  - Splenomegaly [Unknown]

NARRATIVE: CASE EVENT DATE: 20181005
